FAERS Safety Report 5343436-7 (Version None)
Quarter: 2007Q2

REPORT INFORMATION
  Report Type: 
  Country: None (occurrence: None)
  Receive Date: 20070531
  Receipt Date: 20070517
  Transmission Date: 20071010
  Serious: Yes (Death, Hospitalization)
  Sender: FDA-Public Use
  Company Number: AZAUK200700182

PATIENT
  Age: 55 Year
  Sex: Male
  Weight: 85.6 kg

DRUGS (24)
  1. VIDAZA [Suspect]
     Indication: ACUTE MYELOID LEUKAEMIA
     Dosage: 75 MG/M2 (150 MG ONCE DAILY X FIVE DAYS), SUBCUTANEOUS
     Route: 058
     Dates: start: 20070326, end: 20070330
  2. VALPROATE SODIUM [Suspect]
     Indication: ACUTE MYELOID LEUKAEMIA
     Dosage: SEE IMAGE
     Dates: end: 20070430
  3. VALPROATE SODIUM [Suspect]
     Indication: ACUTE MYELOID LEUKAEMIA
     Dosage: SEE IMAGE
     Dates: start: 20070326
  4. THEOPHYLLINE [Suspect]
     Indication: ACUTE MYELOID LEUKAEMIA
     Dosage: 175 MG (175 MG, ONCE DAILY)
     Dates: start: 20070326, end: 20070430
  5. ATRA (TRETINOIN) [Suspect]
     Indication: ACUTE MYELOID LEUKAEMIA
     Dosage: 90 MG (DAILY)
     Dates: start: 20070326, end: 20070430
  6. VALACYCLOVIR HCL [Concomitant]
  7. METRONIDAZOLE [Concomitant]
  8. ADCORTYL IN ORAL BASE (TRIAMCINOLONE ACETONIDE) [Concomitant]
  9. AMILORIDE(AMILORIDE) [Concomitant]
  10. BACTRIM [Concomitant]
  11. ITRACONAZOLE [Concomitant]
  12. FOLIC ACID [Concomitant]
  13. LANSOPRAZOLE [Concomitant]
  14. LEVOTHYROXINE SODIUM [Concomitant]
  15. ALLOPURINOL [Concomitant]
  16. PREDNISOLONE [Concomitant]
  17. CORSODYL (CHLORHEXIDINE GLUCONATE) [Concomitant]
  18. ACETAMINOPHEN [Concomitant]
  19. METOCLOPRAMIDE [Concomitant]
  20. GRANISETRON  HCL [Concomitant]
  21. DOCUSATE (DOCUSATE) [Concomitant]
  22. NASONEX [Concomitant]
  23. PENICILLIN [Concomitant]
  24. SENOKOT [Concomitant]

REACTIONS (8)
  - BLOOD CULTURE POSITIVE [None]
  - BLOOD PRESSURE SYSTOLIC DECREASED [None]
  - CONDITION AGGRAVATED [None]
  - NEUTROPENIC SEPSIS [None]
  - PSEUDOMONAS INFECTION [None]
  - REFUSAL OF TREATMENT BY PATIENT [None]
  - SPUTUM CULTURE POSITIVE [None]
  - WHITE BLOOD CELL COUNT DECREASED [None]
